FAERS Safety Report 20598832 (Version 4)
Quarter: 2024Q2

REPORT INFORMATION
  Report Type: Report from Study
  Country: JP (occurrence: JP)
  Receive Date: 20220315
  Receipt Date: 20240626
  Transmission Date: 20240715
  Serious: Yes (Hospitalization, Disabling, Other)
  Sender: FDA-Public Use
  Company Number: JP-ONO-2022JP006904

PATIENT
  Age: 82 Year
  Sex: Male
  Weight: 50.3 kg

DRUGS (4)
  1. BRAFTOVI [Suspect]
     Active Substance: ENCORAFENIB
     Indication: Rectal cancer
     Dosage: 300 MG, EVERYDAY
     Route: 048
     Dates: start: 20220112, end: 20220222
  2. MEKTOVI [Suspect]
     Active Substance: BINIMETINIB
     Indication: Rectal cancer
     Dosage: 90 MG, EVERYDAY
     Route: 048
     Dates: start: 20220112, end: 20220222
  3. CETUXIMAB [Concomitant]
     Active Substance: CETUXIMAB
     Indication: Rectal cancer
     Dosage: 380 MG (400MG/M2)
     Route: 065
     Dates: start: 20220112, end: 20220112
  4. CETUXIMAB [Concomitant]
     Active Substance: CETUXIMAB
     Dosage: 250 MG
     Route: 065
     Dates: start: 20220119, end: 20220216

REACTIONS (2)
  - Pneumocystis jirovecii pneumonia [Recovered/Resolved with Sequelae]
  - Pneumonia cytomegaloviral [Recovered/Resolved with Sequelae]

NARRATIVE: CASE EVENT DATE: 20220222
